FAERS Safety Report 9018877 (Version 3)
Quarter: 2013Q1

REPORT INFORMATION
  Report Type: Report from Study
  Country: DE (occurrence: DE)
  Receive Date: 20130118
  Receipt Date: 20130202
  Transmission Date: 20140127
  Serious: Yes (Hospitalization)
  Sender: FDA-Public Use
  Company Number: DE-B.I. PHARMACEUTICALS,INC./RIDGEFIELD-2013-BI-00731BI

PATIENT
  Age: 72 Year
  Sex: Male
  Weight: 70 kg

DRUGS (11)
  1. TIOTROPIUM BROMIDE [Suspect]
     Indication: CHRONIC OBSTRUCTIVE PULMONARY DISEASE
     Dosage: 5 MCG
     Route: 055
     Dates: start: 20101020, end: 20121130
  2. SYMBICORT [Concomitant]
     Indication: CHRONIC OBSTRUCTIVE PULMONARY DISEASE
     Dosage: 320 MCG
     Route: 055
     Dates: start: 20120108
  3. DAXAS [Concomitant]
     Indication: CHRONIC OBSTRUCTIVE PULMONARY DISEASE
     Dosage: 500 MCG
     Dates: start: 20120108
  4. SULTANOL [Concomitant]
     Indication: CHRONIC OBSTRUCTIVE PULMONARY DISEASE
     Dosage: 0.1 NR
  5. FALITHROM [Concomitant]
     Indication: AORTIC VALVE REPLACEMENT
     Dosage: 1.5 MG
     Dates: start: 1984
  6. FALITHROM [Concomitant]
     Indication: ANTICOAGULANT THERAPY
  7. AMLODIPIN [Concomitant]
     Indication: HYPERTENSION
     Dosage: 5 MG
     Dates: start: 2008
  8. AMLODIPIN [Concomitant]
     Indication: ANGINA PECTORIS
  9. RAMIPRIL [Concomitant]
     Indication: HYPERTENSION
     Dosage: 5 MG
     Dates: start: 2008
  10. RAMIPRIL [Concomitant]
     Indication: ANGINA PECTORIS
  11. ASS [Concomitant]
     Indication: CORONARY ARTERY DISEASE
     Dosage: 100 NR
     Dates: start: 20120201

REACTIONS (4)
  - Angina pectoris [Recovered/Resolved]
  - Intraocular pressure increased [Recovered/Resolved]
  - Cataract [Recovered/Resolved]
  - Glaucoma [Recovered/Resolved]
